FAERS Safety Report 11307767 (Version 1)
Quarter: 2015Q3

REPORT INFORMATION
  Report Type: Spontaneous
  Country: IL (occurrence: IL)
  Receive Date: 20150724
  Receipt Date: 20150724
  Transmission Date: 20151125
  Serious: Yes (Other)
  Sender: FDA-Public Use
  Company Number: IL-ROCHE-1611798

PATIENT

DRUGS (4)
  1. PULMISON [Concomitant]
     Active Substance: PREDNISONE
     Route: 065
  2. XOLAIR [Suspect]
     Active Substance: OMALIZUMAB
     Indication: PRODUCT USED FOR UNKNOWN INDICATION
     Dosage: A TOTAL OF 10 INJECTIONS
     Route: 065
  3. PULMISON [Concomitant]
     Active Substance: PREDNISONE
     Route: 065
  4. PULMISON [Concomitant]
     Active Substance: PREDNISONE
     Route: 065

REACTIONS (3)
  - Wheezing [Recovered/Resolved]
  - Pulmonary contusion [Unknown]
  - Lung infection [Unknown]
